FAERS Safety Report 9146044 (Version 1)
Quarter: 2013Q1

REPORT INFORMATION
  Report Type: Spontaneous
  Country: US (occurrence: US)
  Receive Date: 20130307
  Receipt Date: 20130307
  Transmission Date: 20140127
  Serious: No
  Sender: FDA-Public Use
  Company Number: US-BAYER-2013-028866

PATIENT
  Sex: Female

DRUGS (3)
  1. ALEVE CAPLET/TABLET,MIDOL EXTENDED RELIEF CAPLET [Suspect]
     Indication: SLEEP DISORDER THERAPY
     Dosage: 1 DF, PRN
     Route: 048
  2. ANTIHYPERTENSIVES [Concomitant]
  3. MEDICATION FOR MY STOMACH ULCER [Concomitant]

REACTIONS (1)
  - Off label use [None]
